FAERS Safety Report 20547090 (Version 1)
Quarter: 2022Q1

REPORT INFORMATION
  Report Type: Spontaneous
  Country: ES (occurrence: ES)
  Receive Date: 20220303
  Receipt Date: 20220303
  Transmission Date: 20220423
  Serious: Yes (Other)
  Sender: FDA-Public Use
  Company Number: ES-INSUD PHARMA-2202ES00845

PATIENT

DRUGS (4)
  1. ESTRASORB [Suspect]
     Active Substance: ESTRADIOL HEMIHYDRATE
     Indication: Ovulation induction
     Dosage: UNKNOWN
     Route: 065
  2. GONADOTROPIN, CHORIONIC [Suspect]
     Active Substance: CHORIOGONADOTROPIN ALFA
     Indication: Ovulation induction
     Dosage: UNKNOWN
     Route: 065
  3. GONADOTROPIN-RELEASING HORMONES [Suspect]
     Active Substance: GONADORELIN
     Indication: Ovulation induction
     Dosage: UNKNOWN
     Route: 065
  4. CORTICOSTEROID NOS [Suspect]
     Active Substance: CORTICOSTEROID NOS
     Indication: Ovulation induction
     Dosage: UNKNOWN
     Route: 065

REACTIONS (3)
  - Choroidal neovascularisation [Recovering/Resolving]
  - Vision blurred [Recovering/Resolving]
  - Metamorphopsia [Recovering/Resolving]
